FAERS Safety Report 10460606 (Version 3)
Quarter: 2014Q4

REPORT INFORMATION
  Report Type: Spontaneous
  Country: US (occurrence: US)
  Receive Date: 20140918
  Receipt Date: 20141001
  Transmission Date: 20150528
  Serious: Yes (Hospitalization)
  Sender: FDA-Public Use
  Company Number: US-UNITED THERAPEUTICS-UNT-2014-007153

PATIENT
  Age: 57 Year
  Sex: Female
  Weight: 82.86 kg

DRUGS (2)
  1. TYVASO [Suspect]
     Active Substance: TREPROSTINIL
     Indication: PULMONARY ARTERIAL HYPERTENSION
     Dosage: 18-54 ?G, QID
     Dates: start: 20130408
  2. REVATIO [Concomitant]
     Active Substance: SILDENAFIL CITRATE
     Indication: PRODUCT USED FOR UNKNOWN INDICATION

REACTIONS (4)
  - Therapy cessation [Recovered/Resolved]
  - Pulmonary arterial hypertension [Unknown]
  - Respiratory failure [Recovering/Resolving]
  - Right ventricular failure [Recovering/Resolving]

NARRATIVE: CASE EVENT DATE: 201408
